FAERS Safety Report 8485473-X (Version None)
Quarter: 2012Q3

REPORT INFORMATION
  Report Type: 
  Country: None (occurrence: None)
  Receive Date: 20120703
  Receipt Date: 20120621
  Transmission Date: 20120928
  Serious: Yes (Hospitalization, Other)
  Sender: FDA-Public Use
  Company Number: US-ELI_LILLY_AND_COMPANY-US201203006019

PATIENT
  Sex: Female
  Weight: 89 kg

DRUGS (11)
  1. FORTEO [Suspect]
     Indication: OSTEOPOROSIS
     Dosage: 20 UG, QD
     Route: 058
     Dates: start: 20120201, end: 20120327
  2. SUCRALFATE [Concomitant]
     Indication: GASTRIC ULCER
     Dosage: UNK
     Dates: end: 20120403
  3. AMIODARONE HYDROCHLORIDE [Concomitant]
  4. FORTEO [Suspect]
     Dosage: 20 UG, QD
     Route: 058
     Dates: start: 20120304
  5. LISINOPRIL [Concomitant]
     Dosage: UNK
     Dates: end: 20120403
  6. FORTEO [Suspect]
     Dosage: 20 UG, QD
     Route: 058
  7. LIPITOR [Concomitant]
  8. COUMADIN [Concomitant]
  9. FORTEO [Suspect]
     Dosage: 20 UG, QD
     Route: 058
     Dates: end: 20120327
  10. FUROSEMIDE [Concomitant]
     Dosage: UNK
  11. WARFARIN SODIUM [Concomitant]
     Dosage: UNK
     Dates: end: 20120403

REACTIONS (15)
  - ULCER HAEMORRHAGE [None]
  - RENAL FAILURE ACUTE [None]
  - CONTUSION [None]
  - PERIORBITAL HAEMATOMA [None]
  - SCRATCH [None]
  - JOINT STIFFNESS [None]
  - VOMITING [None]
  - FALL [None]
  - ARTHRALGIA [None]
  - VIRAL INFECTION [None]
  - DEHYDRATION [None]
  - COAGULATION TIME PROLONGED [None]
  - NAUSEA [None]
  - MUSCULAR WEAKNESS [None]
  - PYREXIA [None]
